FAERS Safety Report 5472363-X (Version None)
Quarter: 2007Q3

REPORT INFORMATION
  Report Type: 
  Country: None (occurrence: None)
  Receive Date: 20070930
  Receipt Date: 20070921
  Transmission Date: 20080115
  Serious: Yes (Disabling)
  Sender: FDA-Public Use
  Company Number: DE-SHR-DE-2007-035878

PATIENT
  Sex: Female

DRUGS (1)
  1. BETASERON [Suspect]
     Route: 058

REACTIONS (1)
  - HEMIPARESIS [None]
